FAERS Safety Report 21566072 (Version 1)
Quarter: 2022Q4

REPORT INFORMATION
  Report Type: Report from Study
  Country: US (occurrence: US)
  Receive Date: 20221108
  Receipt Date: 20221108
  Transmission Date: 20230113
  Serious: No
  Sender: FDA-Public Use
  Company Number: US-ABBVIE-22K-163-4488698-00

PATIENT
  Sex: Female

DRUGS (1)
  1. HUMIRA [Suspect]
     Active Substance: ADALIMUMAB
     Indication: Crohn^s disease
     Dosage: HUMIRA 40MG/0.4ML CF
     Route: 058

REACTIONS (7)
  - Injection site pain [Recovered/Resolved]
  - Injection site pain [Recovered/Resolved with Sequelae]
  - Fatigue [Recovered/Resolved]
  - Headache [Recovered/Resolved]
  - Oedema peripheral [Recovered/Resolved with Sequelae]
  - Nausea [Recovered/Resolved]
  - Neuralgia [Recovered/Resolved with Sequelae]
